FAERS Safety Report 6055025-X (Version None)
Quarter: 2009Q1

REPORT INFORMATION
  Report Type: 
  Country: None (occurrence: None)
  Receive Date: 20090122
  Receipt Date: 20090113
  Transmission Date: 20090719
  Serious: Yes (Life-Threatening)
  Sender: FDA-Public Use
  Company Number: 2009AL000295

PATIENT
  Age: 79 Year
  Sex: Female

DRUGS (9)
  1. AMLODIPINE BESYLATE [Suspect]
     Dosage: 5 MG; QD; PO
     Route: 048
  2. TEMAZEPAM [Suspect]
     Dosage: 20 MG; PO
     Route: 048
  3. RANITIDINE SYRUP (RANITIDINE ORAL SOLUTION USP) (MALLC) [Suspect]
     Dosage: 300 MG; PO
     Route: 048
  4. LANSOPRAZOLE [Concomitant]
  5. VALSARTAN [Concomitant]
  6. ACETYLSALICYLIC ACID SRT [Concomitant]
  7. ATORVASTATIN [Concomitant]
  8. VENTOLIN [Concomitant]
  9. SERETIDE [Concomitant]

REACTIONS (3)
  - APPARENT DEATH [None]
  - ASTHMA [None]
  - LOWER RESPIRATORY TRACT INFECTION [None]
